FAERS Safety Report 20147756 (Version 2)
Quarter: 2022Q1

REPORT INFORMATION
  Report Type: Spontaneous
  Country: CL (occurrence: CL)
  Receive Date: 20211203
  Receipt Date: 20220104
  Transmission Date: 20220423
  Serious: Yes (Other)
  Sender: FDA-Public Use
  Company Number: CL-UCBSA-2021056424

PATIENT
  Age: 33 Year
  Sex: Female

DRUGS (7)
  1. CIMZIA [Suspect]
     Active Substance: CERTOLIZUMAB PEGOL
     Indication: Spondyloarthropathy
     Dosage: UNK UNK, EV 2 WEEKS(QOW)
     Route: 058
     Dates: start: 20210809, end: 2021
  2. CIMZIA [Suspect]
     Active Substance: CERTOLIZUMAB PEGOL
     Dosage: 200 MILLIGRAM, EV 2 WEEKS(QOW)
     Route: 058
     Dates: start: 2021, end: 20211109
  3. ADALIMUMAB [Concomitant]
     Active Substance: ADALIMUMAB
     Indication: Product used for unknown indication
     Dosage: UNK
     Dates: end: 20210719
  4. ETORICOXIB [Concomitant]
     Active Substance: ETORICOXIB
     Indication: Spondyloarthropathy
     Dosage: 120 MILLIGRAM, AS NEEDED (PRN)
     Route: 048
     Dates: start: 20210922, end: 20210922
  5. ETORICOXIB [Concomitant]
     Active Substance: ETORICOXIB
     Dosage: 120 MILLIGRAM, AS NEEDED (PRN)
     Route: 048
     Dates: start: 20211007, end: 20211007
  6. PREDNISONE [Concomitant]
     Active Substance: PREDNISONE
     Indication: Spondyloarthropathy
     Dosage: 5 MILLIGRAM, 1 OR 2 DAYS
     Route: 048
  7. PREDNISONE [Concomitant]
     Active Substance: PREDNISONE
     Dosage: 10 MILLIGRAM, 2X/DAY (BID)
     Route: 048
     Dates: start: 20211110, end: 20211206

REACTIONS (3)
  - Sacral pain [Recovering/Resolving]
  - Inappropriate schedule of product administration [Unknown]
  - Treatment failure [Unknown]

NARRATIVE: CASE EVENT DATE: 20210101
